FAERS Safety Report 7384113-0 (Version None)
Quarter: 2011Q1

REPORT INFORMATION
  Report Type: 
  Country: None (occurrence: None)
  Receive Date: 20110330
  Receipt Date: 20110322
  Transmission Date: 20110831
  Serious: Yes (Other)
  Sender: FDA-Public Use
  Company Number: A0913153A

PATIENT
  Age: 22 Year
  Sex: Male

DRUGS (1)
  1. MALARONE [Suspect]
     Indication: PROPHYLAXIS
     Dosage: 1TAB PER DAY
     Route: 048
     Dates: start: 20110203

REACTIONS (12)
  - INFLUENZA LIKE ILLNESS [None]
  - EMOTIONAL DISTRESS [None]
  - CHILLS [None]
  - HYPERSENSITIVITY [None]
  - MALAISE [None]
  - TINNITUS [None]
  - CHROMATURIA [None]
  - SWELLING FACE [None]
  - JAUNDICE [None]
  - YELLOW SKIN [None]
  - STRESS [None]
  - PYREXIA [None]
